FAERS Safety Report 16662140 (Version 2)
Quarter: 2020Q1

REPORT INFORMATION
  Report Type: Report from Study
  Country: DE (occurrence: DE)
  Receive Date: 20190802
  Receipt Date: 20200211
  Transmission Date: 20200409
  Serious: Yes (Death, Hospitalization)
  Sender: FDA-Public Use
  Company Number: PHHY2019DE090524

PATIENT
  Sex: Male

DRUGS (2)
  1. ERELZI [Suspect]
     Active Substance: ETANERCEPT-SZZS
     Indication: RHEUMATOID ARTHRITIS
     Dosage: 50 MG, QW
     Route: 058
     Dates: start: 20181009, end: 201811
  2. METHOTREXATE. [Suspect]
     Active Substance: METHOTREXATE
     Indication: PRODUCT USED FOR UNKNOWN INDICATION
     Dosage: 15 OT, UNK
     Route: 065
     Dates: start: 20181009

REACTIONS (3)
  - Pneumonia [Fatal]
  - Mediastinum neoplasm [Not Recovered/Not Resolved]
  - Sarcomatoid mesothelioma [Fatal]

NARRATIVE: CASE EVENT DATE: 20181019
